FAERS Safety Report 7052847-3 (Version None)
Quarter: 2010Q4

REPORT INFORMATION
  Report Type: 
  Country: None (occurrence: None)
  Receive Date: 20101019
  Receipt Date: 20101006
  Transmission Date: 20110411
  Serious: Yes (Congenital Anomaly)
  Sender: FDA-Public Use
  Company Number: FR-MYLANLABS-2010S1018651

PATIENT
  Sex: Female

DRUGS (1)
  1. FLUOXETINE [Suspect]
     Route: 065

REACTIONS (6)
  - CONGENITAL HEART VALVE DISORDER [None]
  - DRUG EXPOSURE DURING PREGNANCY [None]
  - EXOMPHALOS [None]
  - FOETAL CARDIAC DISORDER [None]
  - FOETAL GROWTH RESTRICTION [None]
  - SINGLE UMBILICAL ARTERY [None]
